FAERS Safety Report 12043900 (Version 1)
Quarter: 2016Q1

REPORT INFORMATION
  Report Type: Spontaneous
  Country: US (occurrence: US)
  Receive Date: 20160208
  Receipt Date: 20160208
  Transmission Date: 20160526
  Serious: No
  Sender: FDA-Public Use
  Company Number: US-WATSON-2015-14427

PATIENT
  Sex: Female
  Weight: 60.9 kg

DRUGS (7)
  1. LIALDA [Concomitant]
     Active Substance: MESALAMINE
     Indication: PROCTITIS
     Dosage: 2.4 G, DAILY
     Route: 048
  2. DHA [Concomitant]
     Active Substance: DIETARY SUPPLEMENT
     Indication: PRODUCT USED FOR UNKNOWN INDICATION
     Dosage: 1 UNK, DAILY
     Route: 048
  3. VITAMIN D                          /00107901/ [Concomitant]
     Active Substance: ERGOCALCIFEROL
     Indication: PRODUCT USED FOR UNKNOWN INDICATION
     Dosage: UNK, DAILY
     Route: 048
  4. CANASA [Suspect]
     Active Substance: MESALAMINE
     Indication: PROCTITIS
     Dosage: 1000 MG, QPM
     Route: 054
     Dates: start: 20150621, end: 20150621
  5. VSL 3 [Concomitant]
     Indication: PRODUCT USED FOR UNKNOWN INDICATION
     Dosage: 1 PACKET, TID
     Route: 048
  6. PRENATAL VITAMINS                  /02014401/ [Concomitant]
     Active Substance: VITAMINS
     Indication: PRODUCT USED FOR UNKNOWN INDICATION
     Dosage: 1 UNK, DAILY
     Route: 048
  7. CANASA [Suspect]
     Active Substance: MESALAMINE
     Dosage: UNK
     Route: 054
     Dates: start: 20150613, end: 20150613

REACTIONS (3)
  - Intentional product misuse [Unknown]
  - Off label use [Unknown]
  - Mucous stools [Recovered/Resolved]
